FAERS Safety Report 13503607 (Version 1)
Quarter: 2017Q2

REPORT INFORMATION
  Report Type: Spontaneous
  Country: US (occurrence: US)
  Receive Date: 20170502
  Receipt Date: 20170502
  Transmission Date: 20170830
  Serious: Yes (Death, Other)
  Sender: FDA-Public Use
  Company Number: US-TEVA-764067USA

PATIENT
  Age: 24 Year
  Sex: Male

DRUGS (2)
  1. BUPRENORPHINE. [Concomitant]
     Active Substance: BUPRENORPHINE
     Route: 065
  2. LOPERAMIDE [Suspect]
     Active Substance: LOPERAMIDE
     Indication: DRUG USE DISORDER
     Route: 048

REACTIONS (3)
  - Toxicity to various agents [Fatal]
  - Drug use disorder [Fatal]
  - Cardio-respiratory arrest [Fatal]
